FAERS Safety Report 6830602-4 (Version None)
Quarter: 2010Q3

REPORT INFORMATION
  Report Type: 
  Country: None (occurrence: None)
  Receive Date: 20100709
  Receipt Date: 20100709
  Transmission Date: 20110219
  Serious: Yes (Disabling)
  Sender: FDA-Public Use
  Company Number: None

PATIENT
  Sex: Female
  Weight: 58.9676 kg

DRUGS (1)
  1. PROZAC [Suspect]
     Indication: DEPRESSION
     Dosage: 20 MG DAILY P.O.
     Dates: start: 20090101

REACTIONS (4)
  - BLISTER [None]
  - IMPAIRED HEALING [None]
  - PAIN IN EXTREMITY [None]
  - SKIN EXFOLIATION [None]
